FAERS Safety Report 9631225 (Version 1)
Quarter: 2013Q4

REPORT INFORMATION
  Report Type: Spontaneous
  Country: US (occurrence: US)
  Receive Date: 20131018
  Receipt Date: 20131018
  Transmission Date: 20140711
  Serious: Yes (Hospitalization)
  Sender: FDA-Public Use
  Company Number: US-BAYER-2013-124263

PATIENT
  Age: 39 Year
  Sex: Female

DRUGS (12)
  1. YAZ [Suspect]
  2. YASMIN [Suspect]
     Indication: CONTRACEPTION
  3. ALLEGRA-D [Concomitant]
  4. RHINOCORT [Concomitant]
     Route: 045
  5. ADVAIR [Concomitant]
     Dosage: 250-50 DISK
  6. CHERATUSSIN AC [Concomitant]
  7. CEPHALEXIN [Concomitant]
     Dosage: 500 MG, DISPENSED, QUANTITY 40
  8. VOLTAREN [Concomitant]
  9. ANCEF [Concomitant]
     Route: 042
  10. KEFLEX [Concomitant]
  11. PHENERGAN [Concomitant]
  12. PERCOCET [Concomitant]

REACTIONS (2)
  - Thrombophlebitis superficial [None]
  - Deep vein thrombosis [None]
